FAERS Safety Report 9696322 (Version 2)
Quarter: 2014Q3

REPORT INFORMATION
  Report Type: Spontaneous
  Country: CA (occurrence: CA)
  Receive Date: 20131119
  Receipt Date: 20140716
  Transmission Date: 20150326
  Serious: Yes (Other)
  Sender: FDA-Public Use
  Company Number: CA-ASTRAZENECA-2013SE83717

PATIENT
  Age: 62 Year
  Sex: Male

DRUGS (7)
  1. TENORETIC [Suspect]
     Active Substance: ATENOLOL\CHLORTHALIDONE
     Indication: HYPERTENSION
     Route: 048
     Dates: start: 2002, end: 2013
  2. NEXIUM [Suspect]
     Active Substance: ESOMEPRAZOLE MAGNESIUM
     Indication: GASTROOESOPHAGEAL REFLUX DISEASE
     Route: 048
     Dates: start: 2002
  3. ADVIL [Concomitant]
     Active Substance: IBUPROFEN
     Dosage: OCCASIONALLY
  4. PILL FOR HIGH BLOOD PRESSURE [Concomitant]
     Indication: HYPERTENSION
  5. TENORETIC [Suspect]
     Active Substance: ATENOLOL\CHLORTHALIDONE
     Indication: HYPERTENSION
     Route: 048
     Dates: start: 2001, end: 2013
  6. NEXIUM [Suspect]
     Active Substance: ESOMEPRAZOLE MAGNESIUM
     Indication: GASTROOESOPHAGEAL REFLUX DISEASE
     Dosage: ABOUT 1 A WEEK ONLY
     Route: 048
     Dates: start: 2001
  7. APO CANDESARTAN (NON-AZ PRODUCT) [Concomitant]

REACTIONS (17)
  - Muscle disorder [Unknown]
  - Limb discomfort [Unknown]
  - Migraine [Unknown]
  - Bone disorder [Unknown]
  - Tinnitus [Unknown]
  - Penis disorder [Unknown]
  - Hypoaesthesia [Unknown]
  - Dizziness [Unknown]
  - Mood altered [Unknown]
  - Tooth loss [Unknown]
  - Back pain [Unknown]
  - Liver disorder [Unknown]
  - Malaise [Unknown]
  - Gait disturbance [Unknown]
  - Road traffic accident [Unknown]
  - Intentional product misuse [Unknown]
  - Body temperature decreased [Unknown]

NARRATIVE: CASE EVENT DATE: 2001
